FAERS Safety Report 14876005 (Version 3)
Quarter: 2018Q2

REPORT INFORMATION
  Report Type: Spontaneous
  Country: JP (occurrence: JP)
  Receive Date: 20180510
  Receipt Date: 20180528
  Transmission Date: 20180711
  Serious: Yes (Death, Hospitalization)
  Sender: FDA-Public Use
  Company Number: PHJP2018JP010224

PATIENT
  Age: 92 Year
  Sex: Male

DRUGS (9)
  1. TIAPRIDE [Concomitant]
     Active Substance: TIAPRIDE
     Dosage: 50 MG, QD
     Route: 065
     Dates: start: 201710
  2. MEMARY [Concomitant]
     Active Substance: MEMANTINE HYDROCHLORIDE
     Indication: DEMENTIA ALZHEIMER^S TYPE
     Dosage: 5 MG, QD
     Route: 065
     Dates: start: 201510, end: 201701
  3. MEMARY [Concomitant]
     Active Substance: MEMANTINE HYDROCHLORIDE
     Dosage: 10 MG, QD
     Route: 065
     Dates: start: 201701, end: 201702
  4. TIAPRIDE [Concomitant]
     Active Substance: TIAPRIDE
     Indication: DEMENTIA ALZHEIMER^S TYPE
     Dosage: 50 MG, QD
     Route: 065
     Dates: start: 201702, end: 20170402
  5. EXELON PATCH [Suspect]
     Active Substance: RIVASTIGMINE
     Indication: DEMENTIA ALZHEIMER^S TYPE
     Dosage: 1.9 MG QD (PATCH 2.5 (CM2), 4.5 MG RIVASTIGMINE BASE)
     Route: 062
     Dates: start: 201510, end: 201702
  6. TIAPRIDE [Concomitant]
     Active Substance: TIAPRIDE
     Dosage: 75 MG, QD
     Route: 065
     Dates: start: 20170403, end: 201710
  7. MEMARY [Concomitant]
     Active Substance: MEMANTINE HYDROCHLORIDE
     Dosage: 15 MG, QD
     Route: 065
     Dates: start: 201702, end: 20170402
  8. BELSOMRA [Concomitant]
     Active Substance: SUVOREXANT
     Indication: PRODUCT USED FOR UNKNOWN INDICATION
     Dosage: 15 MG, QD
     Route: 065
     Dates: start: 201702
  9. MEMARY [Concomitant]
     Active Substance: MEMANTINE HYDROCHLORIDE
     Dosage: 20 MG, QD
     Route: 065
     Dates: start: 20170403

REACTIONS (14)
  - Incontinence [Unknown]
  - Cardio-respiratory arrest [Fatal]
  - Aggression [Unknown]
  - Pyrexia [Unknown]
  - Nasopharyngitis [Unknown]
  - Sputum increased [Unknown]
  - Dysphonia [Unknown]
  - Neuropsychiatric symptoms [Unknown]
  - Poriomania [Unknown]
  - Cough [Unknown]
  - Executive dysfunction [Unknown]
  - Restlessness [Recovering/Resolving]
  - Abnormal behaviour [Recovering/Resolving]
  - Rhinorrhoea [Unknown]

NARRATIVE: CASE EVENT DATE: 201602
